FAERS Safety Report 7082769-3 (Version None)
Quarter: 2010Q4

REPORT INFORMATION
  Report Type: 
  Country: None (occurrence: None)
  Receive Date: 20101104
  Receipt Date: 20101025
  Transmission Date: 20110411
  Serious: Yes (Other)
  Sender: FDA-Public Use
  Company Number: US-MYLANLABS-2010S1019678

PATIENT
  Age: 32 Year
  Sex: Female

DRUGS (3)
  1. AMNESTEEM [Suspect]
     Dates: start: 20100329
  2. AMNESTEEM [Suspect]
     Dates: end: 20100920
  3. CLARAVIS [Suspect]

REACTIONS (1)
  - DRUG EXPOSURE DURING PREGNANCY [None]
